FAERS Safety Report 11156869 (Version 1)
Quarter: 2015Q2

REPORT INFORMATION
  Report Type: Spontaneous
  Country: ES (occurrence: ES)
  Receive Date: 20150602
  Receipt Date: 20150602
  Transmission Date: 20150821
  Serious: Yes (Other)
  Sender: FDA-Public Use
  Company Number: ES-JNJFOC-20150518591

PATIENT
  Age: 67 Year
  Sex: Male

DRUGS (1)
  1. RISPERIDONE. [Suspect]
     Active Substance: RISPERIDONE
     Indication: AGITATION
     Route: 030

REACTIONS (4)
  - Coma [Unknown]
  - Off label use [Unknown]
  - Agitation [Unknown]
  - Sedation [Unknown]

NARRATIVE: CASE EVENT DATE: 2009
